FAERS Safety Report 8524175-8 (Version None)
Quarter: 2012Q3

REPORT INFORMATION
  Report Type: 
  Country: None (occurrence: None)
  Receive Date: 20120720
  Receipt Date: 20120718
  Transmission Date: 20120928
  Serious: Yes (Other)
  Sender: FDA-Public Use
  Company Number: VE-PFIZER INC-2012155988

PATIENT
  Age: 79 Year
  Sex: Male

DRUGS (5)
  1. LIPITOR [Suspect]
     Indication: HYPERCHOLESTEROLAEMIA
     Dosage: 40 MG, 1X/DAY
     Route: 048
     Dates: start: 20110101
  2. GLUCOPHAGE XR [Concomitant]
     Dosage: 750 MG, 1X/DAY
     Route: 048
  3. NIMODIPINE [Concomitant]
     Dosage: 90 MG, 1X/DAY
     Route: 048
  4. COZAAR [Concomitant]
     Dosage: 50 MG, 1X/DAY
     Route: 048
  5. OMEPRAZOLE [Concomitant]
     Dosage: 20 MG, 1X/DAY
     Route: 048

REACTIONS (2)
  - INFLUENZA [None]
  - WRIST FRACTURE [None]
